FAERS Safety Report 19820938 (Version 1)
Quarter: 2021Q3

REPORT INFORMATION
  Report Type: Spontaneous
  Country: US (occurrence: US)
  Receive Date: 20210913
  Receipt Date: 20210913
  Transmission Date: 20211014
  Serious: Yes (Hospitalization)
  Sender: FDA-Public Use
  Company Number: US-STRIDES ARCOLAB LIMITED-2021SP027397

PATIENT
  Sex: Male

DRUGS (10)
  1. HYDRALAZINE;ISOSORBIDE DINITRATE [Suspect]
     Active Substance: HYDRALAZINE HYDROCHLORIDE\ISOSORBIDE DINITRATE
     Indication: HYPERTENSION
     Dosage: UNK, DAILY
     Route: 065
  2. HYDRALAZINE;ISOSORBIDE DINITRATE [Suspect]
     Active Substance: HYDRALAZINE HYDROCHLORIDE\ISOSORBIDE DINITRATE
     Dosage: UNK, THERAPY WAS OPTIMISED DURING THE PATIENT^S PREVIOUS ADMISSIONS
     Route: 065
  3. HYDROCHLOROTHIAZIDE. [Suspect]
     Active Substance: HYDROCHLOROTHIAZIDE
     Indication: HYPERTENSION
     Dosage: UNK, DAILY
     Route: 065
  4. CARVEDILOL. [Suspect]
     Active Substance: CARVEDILOL
     Dosage: UNK, THERAPY WAS OPTIMISED DURING THE PATIENT^S PREVIOUS ADMISSIONS
     Route: 065
  5. AMLODIPINE [Suspect]
     Active Substance: AMLODIPINE BESYLATE
     Indication: HYPERTENSION
     Dosage: UNK, DAILY
     Route: 065
  6. BENAZEPRIL [Suspect]
     Active Substance: BENAZEPRIL HYDROCHLORIDE
     Indication: HYPERTENSION
     Dosage: UNK, DAILY
     Route: 065
  7. AMLODIPINE [Suspect]
     Active Substance: AMLODIPINE BESYLATE
     Dosage: UNK, THERAPY WAS OPTIMISED DURING THE PATIENT^S PREVIOUS ADMISSIONS
     Route: 065
  8. CARVEDILOL. [Suspect]
     Active Substance: CARVEDILOL
     Indication: HYPERTENSION
     Dosage: UNK, DAILY
     Route: 065
  9. BENAZEPRIL [Suspect]
     Active Substance: BENAZEPRIL HYDROCHLORIDE
     Dosage: UNK, THERAPY WAS OPTIMISED DURING THE PATIENT^S PREVIOUS ADMISSIONS
     Route: 065
  10. HYDROCHLOROTHIAZIDE. [Suspect]
     Active Substance: HYDROCHLOROTHIAZIDE
     Dosage: UNK, THERAPY WAS OPTIMISED DURING THE PATIENT^S PREVIOUS ADMISSIONS
     Route: 065

REACTIONS (7)
  - Fall [Unknown]
  - Hypotension [Unknown]
  - Mental disorder [Unknown]
  - Confusional state [Unknown]
  - Infarction [Unknown]
  - Cerebrovascular accident [Unknown]
  - Product prescribing error [Unknown]
